FAERS Safety Report 12940241 (Version 1)
Quarter: 2016Q4

REPORT INFORMATION
  Report Type: Spontaneous
  Country: FR (occurrence: FR)
  Receive Date: 20161114
  Receipt Date: 20161114
  Transmission Date: 20170207
  Serious: Yes (Hospitalization, Other)
  Sender: FDA-Public Use
  Company Number: FR-SA-2016SA206192

PATIENT
  Age: 31 Year
  Sex: Female

DRUGS (7)
  1. TEMOZOLOMIDE. [Suspect]
     Active Substance: TEMOZOLOMIDE
     Indication: SUICIDE ATTEMPT
     Route: 048
     Dates: start: 20161014, end: 20161014
  2. ATARAX [Suspect]
     Active Substance: HYDROXYZINE\HYDROXYZINE HYDROCHLORIDE
     Indication: SUICIDE ATTEMPT
     Route: 048
     Dates: start: 20161014, end: 20161014
  3. ORELOX [Suspect]
     Active Substance: CEFPODOXIME
     Indication: SUICIDE ATTEMPT
     Route: 048
     Dates: start: 20161014, end: 20161014
  4. BROMAZEPAM [Suspect]
     Active Substance: BROMAZEPAM
     Indication: SUICIDE ATTEMPT
     Route: 048
     Dates: start: 20161014, end: 20161014
  5. ZOLPIDEM [Suspect]
     Active Substance: ZOLPIDEM\ZOLPIDEM TARTRATE
     Indication: SUICIDE ATTEMPT
     Route: 048
     Dates: start: 20161014, end: 20161014
  6. VERATRAN [Suspect]
     Active Substance: CLOTIAZEPAM
     Indication: SUICIDE ATTEMPT
     Route: 048
     Dates: start: 20161014, end: 20161014
  7. KEPPRA [Suspect]
     Active Substance: LEVETIRACETAM
     Indication: SUICIDE ATTEMPT
     Route: 048
     Dates: start: 20161014, end: 20161014

REACTIONS (1)
  - Abortion spontaneous [Unknown]
